FAERS Safety Report 5218303-X (Version None)
Quarter: 2007Q1

REPORT INFORMATION
  Report Type: 
  Country: None (occurrence: None)
  Receive Date: 20070122
  Receipt Date: 20070122
  Transmission Date: 20070707
  Serious: Yes (Life-Threatening)
  Sender: FDA-Public Use
  Company Number: None

PATIENT
  Age: 49 Year
  Sex: Female

DRUGS (7)
  1. SUCCINYLCHOLINE CHLORIDE [Suspect]
     Indication: NEUROMUSCULAR BLOCKADE
     Dosage: INTRAVENOUS
     Route: 042
     Dates: start: 20061101, end: 20061101
  2. PROPOFOL [Concomitant]
  3. METOCLOPRAMIDE [Concomitant]
  4. MIDAZOLAM HCL [Concomitant]
  5. SODIUM CITRATE [Concomitant]
  6. FENTANYL TRANSDERMAL SYSTEM [Concomitant]
  7. PRESERVATIVE FREE LIDOCAINE [Concomitant]

REACTIONS (2)
  - BLOOD PRESSURE DECREASED [None]
  - RASH MACULAR [None]
